FAERS Safety Report 21084630 (Version 4)
Quarter: 2022Q3

REPORT INFORMATION
  Report Type: Spontaneous
  Country: US (occurrence: US)
  Receive Date: 20220714
  Receipt Date: 20220930
  Transmission Date: 20221026
  Serious: Yes (Life-Threatening, Other)
  Sender: FDA-Public Use
  Company Number: US-PFIZER INC-202200958438

PATIENT
  Age: 57 Year
  Sex: Female

DRUGS (15)
  1. IBRANCE [Suspect]
     Active Substance: PALBOCICLIB
     Dosage: 125 MG, CYCLIC (TAKE 1 TABLET DAILY FOR 21 DAYS THEN 7 DAYS OFF)
     Route: 048
     Dates: start: 20220629
  2. BENADRYL [Concomitant]
     Active Substance: DIPHENHYDRAMINE HYDROCHLORIDE
     Dosage: UNK
  3. BUPRENORPHINE\NALOXONE [Concomitant]
     Active Substance: BUPRENORPHINE\NALOXONE
     Dosage: UNK
  4. CURCUMIN [Concomitant]
     Active Substance: CURCUMIN
     Dosage: UNK
  5. EFFEXOR [Concomitant]
     Active Substance: VENLAFAXINE HYDROCHLORIDE
     Dosage: UNK
  6. LORATADINE [Concomitant]
     Active Substance: LORATADINE
     Dosage: UNK
  7. ONDANSETRON HCL [Concomitant]
     Active Substance: ONDANSETRON HYDROCHLORIDE
     Dosage: UNK
  8. PROPRANOLOL HYDROCHLORIDE [Concomitant]
     Active Substance: PROPRANOLOL HYDROCHLORIDE
     Dosage: UNK
  9. SERTRALINE [Concomitant]
     Active Substance: SERTRALINE HYDROCHLORIDE
     Dosage: UNK
  10. SUMATRIPTAN SUCCINATE [Concomitant]
     Active Substance: SUMATRIPTAN SUCCINATE
     Dosage: UNK
  11. SYNTHROID [Concomitant]
     Active Substance: LEVOTHYROXINE SODIUM
     Dosage: UNK
  12. TOPIRAMATE [Concomitant]
     Active Substance: TOPIRAMATE
     Dosage: UNK
  13. VITAMIN E [Concomitant]
     Active Substance: .ALPHA.-TOCOPHEROL
     Dosage: UNK
  14. EXEMESTANE [Concomitant]
     Active Substance: EXEMESTANE
  15. PEPCID AC [Concomitant]
     Active Substance: FAMOTIDINE

REACTIONS (35)
  - Fear of death [Unknown]
  - Gallbladder operation [Unknown]
  - Muscle spasms [Recovering/Resolving]
  - Biliary colic [Recovering/Resolving]
  - Body temperature abnormal [Unknown]
  - Night sweats [Not Recovered/Not Resolved]
  - Fatigue [Unknown]
  - Liver function test decreased [Not Recovered/Not Resolved]
  - Protein total abnormal [Unknown]
  - White blood cell count decreased [Unknown]
  - Emotional disorder [Recovering/Resolving]
  - Contusion [Recovering/Resolving]
  - Skin discolouration [Unknown]
  - Blood alkaline phosphatase increased [Recovering/Resolving]
  - Blood cholesterol increased [Recovering/Resolving]
  - Skin irritation [Recovering/Resolving]
  - Hyperaesthesia [Recovering/Resolving]
  - Urinary tract infection [Unknown]
  - Cystitis [Unknown]
  - Fear [Unknown]
  - Anxiety [Unknown]
  - Stress [Unknown]
  - Abdominal discomfort [Unknown]
  - Blood pressure abnormal [Unknown]
  - Depression [Unknown]
  - Blood glucose increased [Unknown]
  - Eye infection [Unknown]
  - Post-traumatic stress disorder [Unknown]
  - Tearfulness [Unknown]
  - Illness [Unknown]
  - Fatigue [Unknown]
  - Neoplasm progression [Unknown]
  - Hot flush [Unknown]
  - Feeling abnormal [Unknown]
  - Liver function test abnormal [Unknown]

NARRATIVE: CASE EVENT DATE: 20220101
